FAERS Safety Report 5179504-2 (Version None)
Quarter: 2006Q4

REPORT INFORMATION
  Report Type: 
  Country: None (occurrence: None)
  Receive Date: 20061211
  Receipt Date: 20061130
  Transmission Date: 20070319
  Serious: Yes (Death, Hospitalization)
  Sender: FDA-Public Use
  Company Number: US018033

PATIENT
  Age: 58 Year
  Sex: Male
  Weight: 60 kg

DRUGS (7)
  1. TRISENOX [Suspect]
     Indication: ACUTE PROMYELOCYTIC LEUKAEMIA
     Dosage: 9 MG QD INTRAVENOUS DRIP
     Route: 041
     Dates: start: 20060425, end: 20060426
  2. TRISENOX [Suspect]
     Indication: ACUTE PROMYELOCYTIC LEUKAEMIA
     Dosage: 9 MG QD INTRAVENOUS DRIP
     Route: 041
     Dates: start: 20060511, end: 20060513
  3. GABEXATE MESILATE [Concomitant]
  4. DANAPAROID SODIUM [Concomitant]
  5. FUROSEMIDE [Concomitant]
  6. VORICONAZOLE [Concomitant]
  7. SULFAMETHOXAZOLE W/TRIMETHROPRIM [Concomitant]

REACTIONS (13)
  - ALANINE AMINOTRANSFERASE INCREASED [None]
  - BLOOD BILIRUBIN INCREASED [None]
  - CEREBRAL HAEMORRHAGE [None]
  - CONDITION AGGRAVATED [None]
  - DISSEMINATED INTRAVASCULAR COAGULATION [None]
  - FEBRILE NEUTROPENIA [None]
  - FUNGAL INFECTION [None]
  - HEPATIC FUNCTION ABNORMAL [None]
  - HYPERCALCAEMIA [None]
  - HYPERGLYCAEMIA [None]
  - HYPONATRAEMIA [None]
  - OLIGURIA [None]
  - WEIGHT INCREASED [None]
